FAERS Safety Report 11349813 (Version 2)
Quarter: 2015Q3

REPORT INFORMATION
  Report Type: Spontaneous
  Country: JP (occurrence: JP)
  Receive Date: 20150807
  Receipt Date: 20150819
  Transmission Date: 20151125
  Serious: Yes (Hospitalization, Other)
  Sender: FDA-Public Use
  Company Number: JP-ELI_LILLY_AND_COMPANY-JP201506007467

PATIENT
  Age: 71 Year
  Sex: Female

DRUGS (4)
  1. NEUROTROPIN                        /06251301/ [Concomitant]
     Dosage: UNK
     Route: 048
  2. FORTEO [Suspect]
     Active Substance: TERIPARATIDE
     Indication: PRODUCT USED FOR UNKNOWN INDICATION
     Dosage: UNK
     Route: 058
     Dates: start: 20150325, end: 20150618
  3. LOXONIN [Concomitant]
     Active Substance: LOXOPROFEN SODIUM
     Dosage: UNK
     Route: 048
  4. MUCOSTA [Concomitant]
     Active Substance: REBAMIPIDE
     Dosage: UNK
     Route: 048

REACTIONS (2)
  - Device malfunction [Recovered/Resolved]
  - Cardiac failure [Unknown]

NARRATIVE: CASE EVENT DATE: 20150618
